FAERS Safety Report 5614072-X (Version None)
Quarter: 2008Q1

REPORT INFORMATION
  Report Type: 
  Country: None (occurrence: None)
  Receive Date: 20080205
  Receipt Date: 20080123
  Transmission Date: 20080703
  Serious: Yes (Hospitalization)
  Sender: FDA-Public Use
  Company Number: CL-AMGEN-US241193

PATIENT
  Sex: Female
  Weight: 42 kg

DRUGS (9)
  1. PANITUMUMAB [Suspect]
     Indication: COLORECTAL CANCER
     Route: 042
     Dates: start: 20070529
  2. FLUOROURACIL [Concomitant]
     Route: 065
  3. OXALIPLATIN [Concomitant]
     Route: 042
  4. DOMPERIDONE [Concomitant]
     Route: 042
  5. ONDANSETRON [Concomitant]
     Route: 042
  6. DEXAMETHASONE TAB [Concomitant]
     Route: 042
  7. OMEPRAZOLE [Concomitant]
     Route: 065
  8. CLONAZEPAM [Concomitant]
     Route: 065
  9. LEUCOVORIN CALCIUM [Concomitant]
     Route: 065

REACTIONS (1)
  - GASTRIC HAEMORRHAGE [None]
